FAERS Safety Report 10443977 (Version 1)
Quarter: 2014Q3

REPORT INFORMATION
  Report Type: Spontaneous
  Country: US (occurrence: US)
  Receive Date: 20140910
  Receipt Date: 20140910
  Transmission Date: 20150326
  Serious: No
  Sender: FDA-Public Use
  Company Number: US-TARO-2014P1003970

PATIENT
  Age: 87 Year
  Sex: Female
  Weight: 56.7 kg

DRUGS (5)
  1. WARFARIN SODIUM TABLETS USP 2MG [Suspect]
     Active Substance: WARFARIN SODIUM
     Route: 048
     Dates: end: 2014
  2. WARFARIN SODIUM TABLETS USP 2MG [Suspect]
     Active Substance: WARFARIN SODIUM
     Indication: HEART RATE IRREGULAR
     Route: 048
     Dates: start: 20140213
  3. WARFARIN SODIUM TABLETS USP 1MG [Suspect]
     Active Substance: WARFARIN SODIUM
     Route: 048
     Dates: end: 2014
  4. TOPROL XL [Concomitant]
     Active Substance: METOPROLOL SUCCINATE
  5. WARFARIN SODIUM TABLETS USP 1MG [Suspect]
     Active Substance: WARFARIN SODIUM
     Indication: HEART RATE IRREGULAR
     Route: 048
     Dates: start: 20140213

REACTIONS (1)
  - Back pain [Not Recovered/Not Resolved]

NARRATIVE: CASE EVENT DATE: 201404
